FAERS Safety Report 22385967 (Version 1)
Quarter: 2023Q2

REPORT INFORMATION
  Report Type: Spontaneous
  Country: CA (occurrence: CA)
  Receive Date: 20230530
  Receipt Date: 20230530
  Transmission Date: 20230722
  Serious: Yes (Other)
  Sender: FDA-Public Use
  Company Number: CA-APIL-2315872US

PATIENT
  Sex: Male

DRUGS (11)
  1. MESALAMINE [Suspect]
     Active Substance: MESALAMINE
     Indication: Product used for unknown indication
     Dosage: 1000 MG, QHS
  2. INFLECTRA [Suspect]
     Active Substance: INFLIXIMAB-DYYB
     Indication: Crohn^s disease
     Dosage: 550 MG Q7WEEKS
     Route: 042
     Dates: start: 20230317, end: 20230317
  3. INFLECTRA [Suspect]
     Active Substance: INFLIXIMAB-DYYB
     Dosage: 548 MG Q7WEEKS
     Route: 042
     Dates: start: 20230119, end: 20230119
  4. INFLECTRA [Suspect]
     Active Substance: INFLIXIMAB-DYYB
     Dosage: 548 MG Q7WEEKS
     Route: 042
  5. INFLECTRA [Suspect]
     Active Substance: INFLIXIMAB-DYYB
     Dosage: 548 MG Q7WEEKS
     Route: 042
     Dates: start: 20221201, end: 20221201
  6. INFLECTRA [Suspect]
     Active Substance: INFLIXIMAB-DYYB
     Dosage: 7.5 MG/KG Q 7 WEEKS
     Route: 042
     Dates: start: 20221119, end: 20221119
  7. INFLECTRA [Suspect]
     Active Substance: INFLIXIMAB-DYYB
     Dosage: 7.5 MG/KG, Q 7 WEEKS
     Route: 042
     Dates: start: 20221013, end: 20221013
  8. INFLECTRA [Suspect]
     Active Substance: INFLIXIMAB-DYYB
     Dosage: 7.5 MG/KG, Q 7 WEEKS
     Route: 042
     Dates: start: 20220825, end: 20220825
  9. INFLECTRA [Suspect]
     Active Substance: INFLIXIMAB-DYYB
     Dosage: 7500 ?G/KG Q 7 WEEKS
     Route: 042
     Dates: start: 20220707, end: 20220707
  10. INFLECTRA [Suspect]
     Active Substance: INFLIXIMAB-DYYB
     Dosage: 7500 ?G/KG Q6WEEKS
     Route: 042
     Dates: start: 20220518, end: 20220518
  11. INFLECTRA [Suspect]
     Active Substance: INFLIXIMAB-DYYB
     Dosage: 7.5 MG/KG Q7WEEKS
     Route: 042
     Dates: start: 2022, end: 2022

REACTIONS (10)
  - Intestinal obstruction [Unknown]
  - Gastrointestinal stenosis [Unknown]
  - Drug level above therapeutic [Unknown]
  - Arthralgia [Not Recovered/Not Resolved]
  - Paraesthesia [Not Recovered/Not Resolved]
  - Pain [Unknown]
  - Illness [Unknown]
  - Abdominal pain [Unknown]
  - Constipation [Unknown]
  - Pruritus [Not Recovered/Not Resolved]
